FAERS Safety Report 19693989 (Version 1)
Quarter: 2021Q3

REPORT INFORMATION
  Report Type: Spontaneous
  Country: US (occurrence: US)
  Receive Date: 20210812
  Receipt Date: 20210812
  Transmission Date: 20211014
  Serious: No
  Sender: FDA-Public Use
  Company Number: US-JNJFOC-20210800652

PATIENT
  Age: 63 Year
  Sex: Male

DRUGS (3)
  1. COVID?19 VACCINE [Concomitant]
     Indication: PRODUCT USED FOR UNKNOWN INDICATION
     Route: 065
     Dates: start: 20210311
  2. MOTRIN [Suspect]
     Active Substance: IBUPROFEN
     Indication: VACCINATION SITE PAIN
     Route: 065
     Dates: start: 20210401
  3. COVID?19 VACCINE [Concomitant]
     Route: 065
     Dates: start: 20210401

REACTIONS (1)
  - Drug ineffective [Unknown]
